FAERS Safety Report 4965838-0 (Version None)
Quarter: 2006Q2

REPORT INFORMATION
  Report Type: 
  Country: None (occurrence: None)
  Receive Date: 20060407
  Receipt Date: 20051223
  Transmission Date: 20061013
  Serious: Yes (Hospitalization)
  Sender: FDA-Public Use
  Company Number: SEWYE264427DEC05

PATIENT
  Sex: Male
  Weight: 105 kg

DRUGS (6)
  1. ENBREL [Suspect]
     Indication: PSORIASIS
     Route: 058
     Dates: start: 20050824, end: 20051223
  2. COZAAR [Concomitant]
     Dates: end: 20051201
  3. HYDROCHLOROTHIAZIDE/LOSARTAN POTASSIUM [Concomitant]
     Dates: end: 20051201
  4. NORVASC [Concomitant]
  5. EMCONCOR [Concomitant]
  6. ACETYLSALICYLIC ACID W/DIPYRIDAMOLE [Concomitant]
     Dates: end: 20051201

REACTIONS (4)
  - ALCOHOL USE [None]
  - ARRHYTHMIA [None]
  - ATRIAL FIBRILLATION [None]
  - CARDIAC FAILURE [None]
